FAERS Safety Report 4549271-1 (Version None)
Quarter: 2005Q1

REPORT INFORMATION
  Report Type: 
  Country: None (occurrence: None)
  Receive Date: 20050110
  Receipt Date: 20050110
  Transmission Date: 20050727
  Serious: Yes (Other)
  Sender: FDA-Public Use
  Company Number: None

PATIENT
  Age: 51 Year
  Sex: Female
  Weight: 56.246 kg

DRUGS (9)
  1. FERRLECIT [Suspect]
     Indication: IRON DEFICIENCY ANAEMIA
     Dosage: 125MG IV QD X 8 DOSES
     Route: 042
     Dates: start: 20041217
  2. FERRLECIT [Suspect]
     Indication: IRON DEFICIENCY ANAEMIA
     Dosage: 125MG IV QD X 8 DOSES
     Route: 042
     Dates: start: 20041221
  3. FERRLECIT [Suspect]
     Indication: IRON DEFICIENCY ANAEMIA
     Dosage: 125MG IV QD X 8 DOSES
     Route: 042
     Dates: start: 20041222
  4. FERRLECIT [Suspect]
     Indication: IRON DEFICIENCY ANAEMIA
     Dosage: 125MG IV QD X 8 DOSES
     Route: 042
     Dates: start: 20041227
  5. FERRLECIT [Suspect]
     Indication: IRON DEFICIENCY ANAEMIA
     Dosage: 125MG IV QD X 8 DOSES
     Route: 042
     Dates: start: 20041228
  6. FERRLECIT [Suspect]
     Indication: IRON DEFICIENCY ANAEMIA
     Dosage: 125MG IV QD X 8 DOSES
     Route: 042
     Dates: start: 20041229
  7. FERRLECIT [Suspect]
     Indication: IRON DEFICIENCY ANAEMIA
     Dosage: 125MG IV QD X 8 DOSES
     Route: 042
     Dates: start: 20050103
  8. FERRLECIT [Suspect]
     Indication: IRON DEFICIENCY ANAEMIA
     Dosage: 125MG IV QD X 8 DOSES
     Route: 042
     Dates: start: 20050104
  9. BENADRYL [Concomitant]

REACTIONS (2)
  - ERYTHEMA [None]
  - URTICARIA [None]
